FAERS Safety Report 4721866-1 (Version None)
Quarter: 2005Q3

REPORT INFORMATION
  Report Type: 
  Country: None (occurrence: None)
  Receive Date: 20050721
  Receipt Date: 20050516
  Transmission Date: 20060218
  Serious: Yes (Other)
  Sender: FDA-Public Use
  Company Number: US-BRISTOL-MYERS SQUIBB COMPANY-12970117

PATIENT
  Age: 89 Year
  Sex: Female
  Weight: 41 kg

DRUGS (9)
  1. COUMADIN [Suspect]
     Dosage: VARYING DOSES SINCE STARTING, MOST RECENTLY 2.5 MG DAILY
     Route: 048
     Dates: start: 20050401
  2. FUROSEMIDE [Concomitant]
     Dosage: DURATION: ^MANY YEARS^
  3. POTASSIUM CHLORIDE [Concomitant]
     Dosage: DURATION: ^MANY YEARS^
  4. TOPROL-XL [Concomitant]
     Dosage: DURATION: ^MANY YEARS^
  5. AMBIEN [Concomitant]
     Dosage: DURATION: ^MANY YEARS^
  6. LEXAPRO [Concomitant]
     Dosage: DURATION: ^MANY YEARS^
  7. DITROPAN [Concomitant]
     Dosage: DURATION: ^MANY YEARS^
  8. XANAX [Concomitant]
     Dosage: DURATION: ^MANY YEARS^
  9. HYDROCODONE + ACETAMINOPHEN [Concomitant]
     Dosage: DURATION: ^MANY YEARS^

REACTIONS (2)
  - ALOPECIA [None]
  - INTERNATIONAL NORMALISED RATIO INCREASED [None]
